FAERS Safety Report 4415027-3 (Version None)
Quarter: 2004Q3

REPORT INFORMATION
  Report Type: 
  Country: None (occurrence: None)
  Receive Date: 20040729
  Receipt Date: 20040722
  Transmission Date: 20050211
  Serious: Yes (Hospitalization)
  Sender: FDA-Public Use
  Company Number: 2004-06-1381

PATIENT
  Sex: Female

DRUGS (1)
  1. RIBAVIRIN [Suspect]
     Dosage: 5XDAILY, ORAL
     Route: 048

REACTIONS (5)
  - ABDOMINAL DISTENSION [None]
  - DIARRHOEA [None]
  - HYPERSENSITIVITY [None]
  - MUSCLE CRAMP [None]
  - REACTION TO DRUG EXCIPIENT [None]
